FAERS Safety Report 8774427 (Version 1)
Quarter: 2012Q4

REPORT INFORMATION
  Report Type: 
  Country: US (occurrence: US)
  Receive Date: 20120907
  Receipt Date: 20120907
  Transmission Date: 20130627
  Serious: Yes (Hospitalization)
  Sender: FDA-Public Use
  Company Number: US-BAYER-2012-092839

PATIENT
  Age: 82 Year
  Sex: Female

DRUGS (3)
  1. XARELTO [Suspect]
     Indication: THROMBOSIS PROPHYLAXIS
     Dosage: 10 mg, QD
     Route: 048
  2. XARELTO [Interacting]
     Indication: KNEE ARTHROPLASTY
     Dosage: 10 mg, QD
     Route: 048
  3. ACETYLSALICYLIC ACID (} 100 MG) [Interacting]
     Indication: CEREBROVASCULAR ACCIDENT

REACTIONS (1)
  - Haemorrhage [Recovered/Resolved]
